FAERS Safety Report 5012386-8 (Version None)
Quarter: 2006Q2

REPORT INFORMATION
  Report Type: 
  Country: None (occurrence: None)
  Receive Date: 20060414
  Receipt Date: 20060119
  Transmission Date: 20061013
  Serious: No
  Sender: FDA-Public Use
  Company Number: 2006SP000353

PATIENT
  Age: 64 Year
  Sex: Female
  Weight: 58.0604 kg

DRUGS (6)
  1. LUNESTA [Suspect]
     Indication: INSOMNIA
     Dosage: 3 MG; HS; ORAL;  5 MG; HS; ORAL;   5 MG; ORAL
     Route: 048
     Dates: start: 20060101, end: 20060101
  2. LUNESTA [Suspect]
     Indication: INSOMNIA
     Dosage: 3 MG; HS; ORAL;  5 MG; HS; ORAL;   5 MG; ORAL
     Route: 048
     Dates: start: 20060101
  3. LUNESTA [Suspect]
     Indication: INSOMNIA
     Dosage: 3 MG; HS; ORAL;  5 MG; HS; ORAL;   5 MG; ORAL
     Route: 048
     Dates: start: 20060101
  4. TYLENOL (CAPLET) [Concomitant]
  5. LEXAPRO [Concomitant]
  6. SIMVASTATIN [Concomitant]

REACTIONS (1)
  - MIDDLE INSOMNIA [None]
